FAERS Safety Report 18299339 (Version 1)
Quarter: 2020Q3

REPORT INFORMATION
  Report Type: Spontaneous
  Country: CN (occurrence: CN)
  Receive Date: 20200923
  Receipt Date: 20200923
  Transmission Date: 20201103
  Serious: Yes (Other)
  Sender: FDA-Public Use
  Company Number: CN-BAXTER-2020BAX019385

PATIENT
  Age: 67 Year
  Sex: Female
  Weight: 50 kg

DRUGS (9)
  1. PREDNISONE ACETATE [Suspect]
     Active Substance: PREDNISONE ACETATE
     Indication: DIFFUSE LARGE B-CELL LYMPHOMA
     Dosage: DOSAGE FORM: TABLETS, DAY 1 TO 5
     Route: 048
     Dates: start: 20200827, end: 20200831
  2. 0.9% SODIUM CHLORIDE INJECTION [Suspect]
     Active Substance: SODIUM CHLORIDE
     Dosage: ETOPOSIDE 150 MG + 0.9% NS 500 ML, DAY 1 TO 3
     Route: 041
     Dates: start: 20200827, end: 20200829
  3. VINCRISTINE SULFATE. [Suspect]
     Active Substance: VINCRISTINE SULFATE
     Indication: DIFFUSE LARGE B-CELL LYMPHOMA
     Dosage: VINCRISTINE SULFATE 2 MG + 0.9% NS 30 ML
     Route: 041
     Dates: start: 20200827, end: 20200827
  4. 0.9% SODIUM CHLORIDE INJECTION [Suspect]
     Active Substance: SODIUM CHLORIDE
     Indication: MEDICATION DILUTION
     Dosage: CYCLOPHOSPHAMIDE 1.2 G + 0.9% NS 50 ML
     Route: 041
     Dates: start: 20200827, end: 20200827
  5. 5% GLUCOSE  INJECTION [Suspect]
     Active Substance: DEXTROSE
     Indication: MEDICATION DILUTION
     Dosage: PIRARUBICIN HYDROCHLORIDE 60 MG + 5% GS 100 ML
     Route: 041
     Dates: start: 20200827, end: 20200827
  6. 0.9% SODIUM CHLORIDE INJECTION [Suspect]
     Active Substance: SODIUM CHLORIDE
     Dosage: VINCRISTINE SULFATE 2 MG + 0.9% NS 30 ML
     Route: 041
     Dates: start: 20200827, end: 20200827
  7. PIRARUBICIN HYDROCHLORIDE [Suspect]
     Active Substance: PIRARUBICIN HYDROCHLORIDE
     Indication: DIFFUSE LARGE B-CELL LYMPHOMA
     Dosage: PIRARUBICIN HYDROCHLORIDE 60 MG + 5% GS 100 ML
     Route: 041
     Dates: start: 20200827, end: 20200827
  8. ENDOXAN [Suspect]
     Active Substance: CYCLOPHOSPHAMIDE
     Indication: DIFFUSE LARGE B-CELL LYMPHOMA
     Dosage: CYCLOPHOSPHAMIDE 1.2 G + 0.9% NS 50 ML
     Route: 041
     Dates: start: 20200827, end: 20200827
  9. ETOPOSIDE. [Suspect]
     Active Substance: ETOPOSIDE
     Indication: DIFFUSE LARGE B-CELL LYMPHOMA
     Dosage: ETOPOSIDE 150 MG + 0.9% NS 500 ML, DAY 1 TO 3
     Route: 041
     Dates: start: 20200827, end: 20200829

REACTIONS (2)
  - Leukopenia [Recovering/Resolving]
  - Myelosuppression [Unknown]

NARRATIVE: CASE EVENT DATE: 20200907
